FAERS Safety Report 17388074 (Version 1)
Quarter: 2020Q1

REPORT INFORMATION
  Report Type: Spontaneous
  Country: AU (occurrence: AU)
  Receive Date: 20200207
  Receipt Date: 20200207
  Transmission Date: 20200409
  Serious: Yes (Hospitalization, Disabling, Other)
  Sender: FDA-Public Use
  Company Number: AU-009507513-2001AUS011389

PATIENT
  Age: 84 Year
  Sex: Female

DRUGS (11)
  1. AMITRIPTYLINE HYDROCHLORIDE. [Concomitant]
     Active Substance: AMITRIPTYLINE HYDROCHLORIDE
  2. CHOLECALCIFEROL [Concomitant]
     Active Substance: CHOLECALCIFEROL
  3. CLARITHROMYCIN. [Interacting]
     Active Substance: CLARITHROMYCIN
     Dosage: 250 MILLIGRAM, TWICE DAILY, REINTRODUCED 3 DAYS AFTER CESATION
  4. LEVOTHYROXINE SODIUM. [Concomitant]
     Active Substance: LEVOTHYROXINE SODIUM
  5. RABEPRAZOLE SODIUM. [Concomitant]
     Active Substance: RABEPRAZOLE SODIUM
  6. EZETIMIBE AND SIMVASTATIN [Suspect]
     Active Substance: EZETIMIBE\SIMVASTATIN
     Indication: HYPERLIPIDAEMIA
     Dosage: UNK, CEASED ON DAY 2 OF HOSPITALIZATIO
     Route: 048
  7. CLARITHROMYCIN. [Interacting]
     Active Substance: CLARITHROMYCIN
     Indication: MYCOBACTERIAL INFECTION
     Dosage: 250 MILLIGRAM, TWICE DAILY, CEASED ON DAY 7 OF HOSPITALIZATION
  8. PREGABALIN. [Interacting]
     Active Substance: PREGABALIN
     Indication: BACK PAIN
     Dosage: 25 MILLIGRAM, TWICE A DAY, CEASED ON DAY 7 OF HOSPITALIZATION
  9. COLOXYL WITH SENNA [Concomitant]
     Active Substance: DOCUSATE SODIUM\SENNOSIDES A AND B
  10. NALOXONE HYDROCHLORIDE (+) OXYCODONE HYDROCHLORIDE [Concomitant]
     Active Substance: NALOXONE HYDROCHLORIDE
  11. BISOPROLOL [Concomitant]
     Active Substance: BISOPROLOL

REACTIONS (4)
  - Rhabdomyolysis [Recovering/Resolving]
  - Labelled drug-drug interaction medication error [Unknown]
  - Drug interaction [Unknown]
  - Myositis [Recovering/Resolving]
